FAERS Safety Report 13980967 (Version 1)
Quarter: 2017Q3

REPORT INFORMATION
  Report Type: Spontaneous
  Country: US (occurrence: US)
  Receive Date: 20170918
  Receipt Date: 20170918
  Transmission Date: 20171128
  Serious: No
  Sender: FDA-Public Use
  Company Number: US-TEVA-758800ACC

PATIENT
  Sex: Female
  Weight: 58.96 kg

DRUGS (2)
  1. CEPHALEXIN. [Concomitant]
     Active Substance: CEPHALEXIN
     Dates: start: 20170318
  2. FEXOFENADINE 180MG TABLET [Suspect]
     Active Substance: FEXOFENADINE HYDROCHLORIDE
     Indication: PERENNIAL ALLERGY
     Dosage: 180 MILLIGRAM DAILY;
     Route: 048
     Dates: start: 2017, end: 20170327

REACTIONS (2)
  - Drug administered to patient of inappropriate age [Unknown]
  - Lip dry [Recovering/Resolving]

NARRATIVE: CASE EVENT DATE: 2017
